FAERS Safety Report 5604332-0 (Version None)
Quarter: 2008Q1

REPORT INFORMATION
  Report Type: 
  Country: None (occurrence: None)
  Receive Date: 20080128
  Receipt Date: 20080116
  Transmission Date: 20080703
  Serious: Yes (Hospitalization)
  Sender: FDA-Public Use
  Company Number: B0504657A

PATIENT
  Age: 40 Year
  Sex: Female

DRUGS (2)
  1. TOPOTECAN [Suspect]
     Route: 065
  2. LYRICA [Suspect]
     Indication: NEUROPATHY PERIPHERAL
     Route: 065

REACTIONS (6)
  - ABDOMINAL PAIN [None]
  - ABDOMINAL PAIN UPPER [None]
  - BLOOD AMYLASE INCREASED [None]
  - LIPASE INCREASED [None]
  - MIXED LIVER INJURY [None]
  - PANCREATITIS ACUTE [None]
